FAERS Safety Report 6885422-1 (Version None)
Quarter: 2010Q3

REPORT INFORMATION
  Report Type: 
  Country: None (occurrence: None)
  Receive Date: 20100729
  Receipt Date: 20081105
  Transmission Date: 20110219
  Serious: Yes (Other)
  Sender: FDA-Public Use
  Company Number: US-PFIZER INC-2008093697

PATIENT
  Age: 66 Year
  Sex: Male

DRUGS (7)
  1. CELEBREX [Suspect]
     Indication: ARTHRALGIA
     Dates: end: 20081001
  2. ACETYLSALICYLIC ACID SRT [Suspect]
     Dates: end: 20081001
  3. MOTRIN IB [Suspect]
     Indication: ARTHRALGIA
     Dosage: FREQUENCY: EVERY 8 HOURS TIMES 4 DOSES
     Route: 048
     Dates: start: 20081002, end: 20081001
  4. TYLENOL ARTHRITIS EXTENDED RELIEF [Concomitant]
  5. TRICOR [Concomitant]
  6. AVAPRO [Concomitant]
  7. ZETIA [Concomitant]

REACTIONS (1)
  - GASTRIC HAEMORRHAGE [None]
